FAERS Safety Report 18907877 (Version 7)
Quarter: 2022Q1

REPORT INFORMATION
  Report Type: Spontaneous
  Country: DE (occurrence: DE)
  Receive Date: 20210217
  Receipt Date: 20220124
  Transmission Date: 20220423
  Serious: Yes (Hospitalization, Other)
  Sender: FDA-Public Use
  Company Number: DE-BIOFRONTERA-000721

PATIENT
  Age: 41 Year
  Sex: Female

DRUGS (1)
  1. AMELUZ [Suspect]
     Active Substance: AMINOLEVULINIC ACID HYDROCHLORIDE
     Indication: Actinic keratosis
     Route: 061
     Dates: start: 20201119, end: 20201119

REACTIONS (20)
  - Application site swelling [Recovered/Resolved]
  - Application site pustules [Recovered/Resolved]
  - Sebaceous hyperplasia [Not Recovered/Not Resolved]
  - Therapeutic product effect incomplete [Unknown]
  - Application site erythema [Not Recovered/Not Resolved]
  - Rash macular [Not Recovered/Not Resolved]
  - Paraesthesia [Recovered/Resolved]
  - Application site scab [Not Recovered/Not Resolved]
  - Application site pain [Recovered/Resolved]
  - Application site pain [Not Recovered/Not Resolved]
  - Skin texture abnormal [Not Recovered/Not Resolved]
  - Solar lentigo [Not Recovered/Not Resolved]
  - Mental disorder [Not Recovered/Not Resolved]
  - Condition aggravated [Not Recovered/Not Resolved]
  - Application site burn [Not Recovered/Not Resolved]
  - Condition aggravated [Not Recovered/Not Resolved]
  - Pigmentation disorder [Not Recovered/Not Resolved]
  - Basal cell carcinoma [Not Recovered/Not Resolved]
  - Impaired quality of life [Not Recovered/Not Resolved]
  - Product use in unapproved indication [Not Recovered/Not Resolved]

NARRATIVE: CASE EVENT DATE: 20201101
